FAERS Safety Report 23471159 (Version 1)
Quarter: 2024Q1

REPORT INFORMATION
  Report Type: Other
  Country: None (occurrence: US)
  Receive Date: 20240202
  Receipt Date: 20240202
  Transmission Date: 20240409
  Serious: Yes (Hospitalization, Other)
  Sender: FDA-Public Use
  Company Number: US-ALSI-2024000018

PATIENT
  Age: 44 Year
  Sex: Female

DRUGS (1)
  1. NITROUS OXIDE [Suspect]
     Active Substance: NITROUS OXIDE
     Indication: Drug abuse
     Route: 055

REACTIONS (1)
  - Subacute combined cord degeneration [Recovering/Resolving]
